FAERS Safety Report 8883040 (Version 3)
Quarter: 2012Q4

REPORT INFORMATION
  Report Type: Report from Study
  Country: CZ (occurrence: CZ)
  Receive Date: 20121102
  Receipt Date: 20121204
  Transmission Date: 20130627
  Serious: Yes (Hospitalization, Other)
  Sender: FDA-Public Use
  Company Number: CZ-ABBOTT-12P-217-1002083-00

PATIENT
  Age: 36 Year
  Sex: Female

DRUGS (9)
  1. HUMIRA [Suspect]
     Indication: RHEUMATOID ARTHRITIS
     Route: 058
     Dates: start: 20110919, end: 20120604
  2. TREXAN [Concomitant]
     Indication: RHEUMATOID ARTHRITIS
     Dates: start: 19970111
  3. ACIDUM FOLICUM [Concomitant]
     Indication: RHEUMATOID ARTHRITIS
     Dates: start: 19970111
  4. APO-DICLO 50 [Concomitant]
     Indication: RHEUMATOID ARTHRITIS
     Dates: start: 20110919
  5. APO-DICLO 100 [Concomitant]
     Indication: RHEUMATOID ARTHRITIS
     Dates: start: 20110919
  6. LANZUL [Concomitant]
     Indication: PROPHYLAXIS AGAINST GASTROINTESTINAL ULCER
     Dates: start: 20080202
  7. MEDROL 4 MG [Concomitant]
     Indication: RHEUMATOID ARTHRITIS
     Dates: start: 20060303
  8. CALTRATE PLUS [Concomitant]
     Indication: OSTEOPOROSIS PROPHYLAXIS
     Dates: start: 20090112
  9. VIGANTOL [Concomitant]
     Indication: OSTEOPOROSIS PROPHYLAXIS
     Dates: start: 20110919

REACTIONS (1)
  - Breast cancer [Not Recovered/Not Resolved]
